FAERS Safety Report 15167691 (Version 1)
Quarter: 2018Q3

REPORT INFORMATION
  Report Type: Other
  Country: US (occurrence: US)
  Receive Date: 20180719
  Receipt Date: 20180719
  Transmission Date: 20181010
  Serious: Yes (Hospitalization)
  Sender: FDA-Public Use
  Company Number: US-BRECKENRIDGE PHARMACEUTICAL, INC.-2052421

PATIENT
  Age: 36 Year
  Sex: Female

DRUGS (1)
  1. METHYLERGONOVINE MALEATE. [Suspect]
     Active Substance: METHYLERGONOVINE MALEATE
     Indication: UTERINE ATONY
     Route: 030

REACTIONS (2)
  - Acute pulmonary oedema [Recovered/Resolved]
  - Pleural effusion [Recovered/Resolved]
